FAERS Safety Report 6456284-1 (Version None)
Quarter: 2009Q4

REPORT INFORMATION
  Report Type: 
  Country: None (occurrence: None)
  Receive Date: 20091125
  Receipt Date: 20091112
  Transmission Date: 20100525
  Serious: Yes (Hospitalization)
  Sender: FDA-Public Use
  Company Number: US-ELI_LILLY_AND_COMPANY-US200911005483

PATIENT
  Age: 85 Year
  Sex: Female

DRUGS (11)
  1. FORTEO [Suspect]
     Indication: OSTEOPOROSIS
     Dosage: 20 UG, DAILY (1/D)
     Dates: start: 20020101, end: 20030101
  2. FORTEO [Suspect]
     Dosage: 20 UG, DAILY (1/D)
     Dates: start: 20091001, end: 20091001
  3. COZAAR [Concomitant]
     Indication: HYPERTENSION
  4. NORVASC [Concomitant]
     Indication: HYPERTENSION
  5. PREDNISONE [Concomitant]
     Dosage: 8 MG, UNK
  6. PRILOSEC [Concomitant]
     Indication: DYSPEPSIA
  7. XANAX [Concomitant]
     Indication: SLEEP DISORDER
     Dosage: 0.25 MG, UNK
  8. FOLIC ACID [Concomitant]
  9. TYLENOL                                 /SCH/ [Concomitant]
     Indication: PAIN
  10. GAS X [Concomitant]
     Indication: ABDOMINAL DISTENSION
  11. CRANBERRY [Concomitant]

REACTIONS (16)
  - ABDOMINAL DISTENSION [None]
  - ARTHRALGIA [None]
  - BLOOD SODIUM ABNORMAL [None]
  - BONE DENSITY DECREASED [None]
  - BONE PAIN [None]
  - CONSTIPATION [None]
  - DYSPNOEA [None]
  - FALL [None]
  - GAIT DISTURBANCE [None]
  - HEAD INJURY [None]
  - HYPERTENSION [None]
  - IRRITABLE BOWEL SYNDROME [None]
  - LUNG DISORDER [None]
  - MYALGIA [None]
  - PAIN [None]
  - URINARY TRACT INFECTION [None]
